FAERS Safety Report 6646673-4 (Version None)
Quarter: 2010Q1

REPORT INFORMATION
  Report Type: 
  Country: None (occurrence: None)
  Receive Date: 20100323
  Receipt Date: 20100317
  Transmission Date: 20100710
  Serious: Yes (Death)
  Sender: FDA-Public Use
  Company Number: HK-CELGENEUS-075-C5013-10031533

PATIENT

DRUGS (1)
  1. CC-5013 [Suspect]
     Indication: DRUG USE FOR UNKNOWN INDICATION
     Route: 048

REACTIONS (2)
  - CONSTIPATION [None]
  - DEATH [None]
